FAERS Safety Report 14192700 (Version 1)
Quarter: 2017Q4

REPORT INFORMATION
  Report Type: Report from Study
  Country: US (occurrence: US)
  Receive Date: 20171115
  Receipt Date: 20171115
  Transmission Date: 20180321
  Serious: Yes (Life-Threatening)
  Sender: FDA-Public Use
  Company Number: US-MYLANLABS-2017M1071925

PATIENT

DRUGS (3)
  1. PACLITAXEL. [Suspect]
     Active Substance: PACLITAXEL
     Indication: SQUAMOUS CELL CARCINOMA OF HEAD AND NECK
     Dosage: 80MG/M2 ON DAY 1 AND 8 OF EACH 21 DAYS CYCLE
     Route: 065
  2. CARBOPLATIN. [Suspect]
     Active Substance: CARBOPLATIN
     Indication: SQUAMOUS CELL CARCINOMA OF HEAD AND NECK
     Dosage: AUC 1.5 ADMINISTERED ON DAY 1 AND 8 OF EACH 21 DAYS CYCLE.
     Route: 065
  3. TEMSIROLIMUS [Suspect]
     Active Substance: TEMSIROLIMUS
     Indication: SQUAMOUS CELL CARCINOMA OF HEAD AND NECK
     Dosage: 25 MG FLAT DOSE ON DAY 1 AND 8 OF EACH 21 DAYS CYCLE.
     Route: 042

REACTIONS (4)
  - Anaemia [Unknown]
  - Leukopenia [Unknown]
  - Pneumonia [Unknown]
  - Hypercalcaemia [Unknown]
